FAERS Safety Report 18666114 (Version 1)
Quarter: 2020Q4

REPORT INFORMATION
  Report Type: Spontaneous
  Country: GB (occurrence: GB)
  Receive Date: 20201226
  Receipt Date: 20201226
  Transmission Date: 20210114
  Serious: Yes (Other)
  Sender: FDA-Public Use
  Company Number: GB-TEVA-2020-GB-1861447

PATIENT
  Age: 57 Year
  Sex: Male
  Weight: 91 kg

DRUGS (3)
  1. PREDNISOLONE. [Concomitant]
     Active Substance: PREDNISOLONE
     Indication: ECZEMA
     Dosage: INTERMITTENTLY, 6 DF
     Dates: start: 20200716
  2. METFORMIN [Concomitant]
     Active Substance: METFORMIN HYDROCHLORIDE
     Dosage: 2 DF
     Dates: start: 20200820
  3. ATORVASTATIN [Suspect]
     Active Substance: ATORVASTATIN
     Dosage: 10 MG
     Dates: start: 20200629

REACTIONS (1)
  - Swollen tongue [Recovered/Resolved]
